FAERS Safety Report 11055900 (Version 3)
Quarter: 2015Q2

REPORT INFORMATION
  Report Type: Report from Study
  Country: JP (occurrence: JP)
  Receive Date: 20150422
  Receipt Date: 20150515
  Transmission Date: 20150821
  Serious: Yes (Hospitalization)
  Sender: FDA-Public Use
  Company Number: JP-ASTRAZENECA-2015SE35646

PATIENT
  Age: 26371 Day
  Sex: Male
  Weight: 57.8 kg

DRUGS (5)
  1. GOODMIN [Suspect]
     Active Substance: BROTIZOLAM
     Indication: INSOMNIA
     Route: 048
     Dates: start: 200710, end: 20150413
  2. PREDONINE [Suspect]
     Active Substance: PREDNISOLONE\PREDNISOLONE ACETATE\PREDNISOLONE SODIUM SUCCINATE
     Indication: RADICULOPATHY
     Route: 048
     Dates: start: 20150408, end: 20150410
  3. LYRICA [Suspect]
     Active Substance: PREGABALIN
     Indication: RADICULOPATHY
     Route: 048
     Dates: start: 20150408, end: 20150413
  4. AZD6140 [Suspect]
     Active Substance: TICAGRELOR
     Indication: PERIPHERAL ARTERIAL OCCLUSIVE DISEASE
     Route: 048
     Dates: start: 20130427, end: 20150408
  5. PROCYLIN [Suspect]
     Active Substance: BERAPROST SODIUM
     Indication: OBSTRUCTIVE AIRWAYS DISORDER
     Route: 048
     Dates: start: 20130212, end: 20150408

REACTIONS (1)
  - Pneumococcal sepsis [Not Recovered/Not Resolved]

NARRATIVE: CASE EVENT DATE: 20150408
